FAERS Safety Report 9235843 (Version 1)
Quarter: 2013Q2

REPORT INFORMATION
  Report Type: Spontaneous
  Country: US (occurrence: None)
  Receive Date: 20130416
  Receipt Date: 20130416
  Transmission Date: 20140414
  Serious: Yes (Other)
  Sender: FDA-Public Use
  Company Number: None

PATIENT
  Age: 74 Year
  Sex: Female
  Weight: 83.92 kg

DRUGS (1)
  1. RECLAST [Suspect]
     Dosage: 5 MG, YEARLY, IV DRIP
     Route: 041
     Dates: start: 20091101, end: 20121101

REACTIONS (1)
  - Osteonecrosis of jaw [None]
